FAERS Safety Report 5227336-9 (Version None)
Quarter: 2007Q1

REPORT INFORMATION
  Report Type: 
  Country: None (occurrence: None)
  Receive Date: 20070202
  Receipt Date: 20070119
  Transmission Date: 20070707
  Serious: Yes (Other)
  Sender: FDA-Public Use
  Company Number: US-AMGEN-US207590

PATIENT
  Sex: Female

DRUGS (2)
  1. ENBREL [Suspect]
     Indication: PSORIASIS
     Route: 065
     Dates: start: 20061201, end: 20070101
  2. METHOTREXATE [Suspect]
     Route: 065
     Dates: end: 20070101

REACTIONS (2)
  - SKIN NECROSIS [None]
  - SKIN ULCER [None]
